FAERS Safety Report 20801366 (Version 1)
Quarter: 2022Q2

REPORT INFORMATION
  Report Type: Spontaneous
  Country: US (occurrence: US)
  Receive Date: 20220509
  Receipt Date: 20220509
  Transmission Date: 20220721
  Serious: Yes (Other)
  Sender: FDA-Public Use
  Company Number: US-RECKITT BENCKISER HEALTHCARE INT LIMITED-RB-088898-2022

PATIENT
  Age: 81 Year
  Sex: Female

DRUGS (2)
  1. MAXIMUM STRENGTH MUCINEX FAST-MAX COLD AND FLU [Suspect]
     Active Substance: ACETAMINOPHEN\DEXTROMETHORPHAN HYDROBROMIDE\GUAIFENESIN\PHENYLEPHRINE HYDROCHLORIDE
     Indication: Sinusitis
     Dosage: UNK
     Route: 048
     Dates: start: 20220502
  2. ERYTHROMYCIN [Concomitant]
     Active Substance: ERYTHROMYCIN
     Indication: Sinusitis
     Dosage: UNK
     Route: 065

REACTIONS (5)
  - Hallucination [Recovered/Resolved]
  - Fear [Recovered/Resolved]
  - Product use in unapproved indication [Recovered/Resolved]
  - Contraindicated product administered [Recovered/Resolved]
  - Dizziness [Recovered/Resolved]

NARRATIVE: CASE EVENT DATE: 20220502
